FAERS Safety Report 8965543 (Version 1)
Quarter: 2012Q4

REPORT INFORMATION
  Report Type: Spontaneous
  Country: US (occurrence: None)
  Receive Date: 20121212
  Receipt Date: 20121212
  Transmission Date: 20130627
  Serious: Yes (Other)
  Sender: FDA-Public Use
  Company Number: None

PATIENT
  Age: 5 Year
  Sex: Female
  Weight: 21.32 kg

DRUGS (1)
  1. SINGULAIR [Suspect]
     Indication: ASTHMA
     Dosage: 4mg daily po
     Route: 048
     Dates: start: 20121009, end: 20121210

REACTIONS (3)
  - Neuropsychiatric syndrome [None]
  - Psychomotor hyperactivity [None]
  - Disturbance in attention [None]
